FAERS Safety Report 5716504-5 (Version None)
Quarter: 2008Q2

REPORT INFORMATION
  Report Type: 
  Country: None (occurrence: None)
  Receive Date: 20080421
  Receipt Date: 20070405
  Transmission Date: 20081010
  Serious: Yes (Hospitalization, Other)
  Sender: FDA-Public Use
  Company Number: WAES 0704USA01047

PATIENT
  Sex: Female

DRUGS (4)
  1. SINGULAIR [Suspect]
     Dosage: PO
     Route: 048
  2. ADVAIR DISKUS 100/50 [Concomitant]
  3. BREVA [Concomitant]
  4. CORTICOSTEROIDS [Concomitant]

REACTIONS (1)
  - HOSPITALISATION [None]
